FAERS Safety Report 12501006 (Version 1)
Quarter: 2016Q2

REPORT INFORMATION
  Report Type: Spontaneous
  Country: GB (occurrence: GB)
  Receive Date: 20160627
  Receipt Date: 20160627
  Transmission Date: 20160815
  Serious: Yes (Other)
  Sender: FDA-Public Use
  Company Number: GB-GUERBET LLC-1054344

PATIENT
  Age: 68 Year
  Sex: Male
  Weight: 92 kg

DRUGS (2)
  1. BUSCOPAN(HYOSCINE BUTYLBROMIDE, SCOPOLAMINE BUTYLBROMIDE) [Suspect]
     Active Substance: BUTYLSCOPOLAMINE BROMIDE
     Route: 042
     Dates: start: 20160620, end: 20160620
  2. DOTAREM [Suspect]
     Active Substance: GADOTERATE MEGLUMINE
     Indication: NUCLEAR MAGNETIC RESONANCE IMAGING
     Route: 042
     Dates: start: 20160620, end: 20160620

REACTIONS (5)
  - Ear discomfort [Recovering/Resolving]
  - Feeling hot [Recovering/Resolving]
  - Erythema [Recovering/Resolving]
  - Eye swelling [Recovering/Resolving]
  - Swelling face [Recovering/Resolving]

NARRATIVE: CASE EVENT DATE: 20160620
